FAERS Safety Report 18408583 (Version 1)
Quarter: 2020Q4

REPORT INFORMATION
  Report Type: Spontaneous
  Country: US (occurrence: US)
  Receive Date: 20201021
  Receipt Date: 20201021
  Transmission Date: 20210114
  Serious: Yes (Other)
  Sender: FDA-Public Use
  Company Number: US-AMGEN-USASP2020167757

PATIENT
  Age: 38 Year
  Sex: Female

DRUGS (5)
  1. CYCLOPHOSPHAMIDE. [Concomitant]
     Active Substance: CYCLOPHOSPHAMIDE
     Indication: ATYPICAL TERATOID/RHABDOID TUMOUR OF CNS
     Dosage: UNK
     Dates: start: 201910
  2. FILGRASTIM [Suspect]
     Active Substance: FILGRASTIM
     Indication: LEUKOPENIA
     Dosage: UNK UNK, QD (7 DAY COURSE)
     Route: 065
  3. CISPLATIN. [Concomitant]
     Active Substance: CISPLATIN
     Indication: ATYPICAL TERATOID/RHABDOID TUMOUR OF CNS
     Dosage: UNK
     Dates: start: 201910
  4. ETOPOSIDE. [Concomitant]
     Active Substance: ETOPOSIDE
     Indication: ATYPICAL TERATOID/RHABDOID TUMOUR OF CNS
     Dosage: UNK
     Dates: start: 201910
  5. FILGRASTIM [Suspect]
     Active Substance: FILGRASTIM
     Indication: NEUTROPENIA

REACTIONS (2)
  - Hypoacusis [Unknown]
  - Neuropathy peripheral [Unknown]
